FAERS Safety Report 21853827 (Version 1)
Quarter: 2023Q1

REPORT INFORMATION
  Report Type: Spontaneous
  Country: FR (occurrence: FR)
  Receive Date: 20230112
  Receipt Date: 20230112
  Transmission Date: 20230417
  Serious: Yes (Hospitalization)
  Sender: FDA-Public Use
  Company Number: FR-TEVA-2023-FR-2844612

PATIENT
  Age: 60 Year
  Sex: Male

DRUGS (10)
  1. EVEROLIMUS [Suspect]
     Active Substance: EVEROLIMUS
     Indication: Immunosuppressant drug therapy
     Route: 065
  2. MYCOPHENOLATE MOFETIL [Suspect]
     Active Substance: MYCOPHENOLATE MOFETIL
     Indication: Immunosuppressant drug therapy
     Route: 065
  3. TACROLIMUS [Suspect]
     Active Substance: TACROLIMUS
     Indication: Immunosuppressant drug therapy
     Route: 065
  4. NULOJIX [Suspect]
     Active Substance: BELATACEPT
     Indication: Cell death
     Route: 065
  5. NULOJIX [Suspect]
     Active Substance: BELATACEPT
     Indication: Cholestasis
  6. BASILIXIMAB [Concomitant]
     Active Substance: BASILIXIMAB
     Indication: Immunosuppressant drug therapy
     Route: 065
  7. COTRIMOXAZOLE [Concomitant]
     Active Substance: SULFAMETHOXAZOLE\TRIMETHOPRIM
     Indication: Cell death
     Route: 065
  8. COTRIMOXAZOLE [Concomitant]
     Active Substance: SULFAMETHOXAZOLE\TRIMETHOPRIM
     Indication: Cholestasis
  9. ATOVAQUONE [Concomitant]
     Active Substance: ATOVAQUONE
     Indication: Cell death
     Route: 065
  10. ATOVAQUONE [Concomitant]
     Active Substance: ATOVAQUONE
     Indication: Cholestasis

REACTIONS (1)
  - Gastrointestinal stromal tumour [Recovered/Resolved]
